FAERS Safety Report 8999832 (Version 1)
Quarter: 2013Q1

REPORT INFORMATION
  Report Type: Spontaneous
  Country: MX (occurrence: MX)
  Receive Date: 20130102
  Receipt Date: 20130102
  Transmission Date: 20140127
  Serious: Yes (Other)
  Sender: FDA-Public Use
  Company Number: MX-SANOFI-AVENTIS-2012SA093667

PATIENT
  Age: 61 Year
  Sex: Female
  Weight: 56 kg

DRUGS (12)
  1. STILNOX [Suspect]
     Indication: SLEEP DISORDER
     Dosage: FREQUENCY: IN NECESSARY CASE
     Route: 048
     Dates: start: 20121127, end: 20121129
  2. STILNOX [Suspect]
     Indication: SLEEP DISORDER
     Dosage: FREQUENCY: IN NECESSARY CASE
     Route: 048
     Dates: start: 20121201, end: 20121204
  3. STILNOX [Suspect]
     Indication: SLEEP DISORDER
     Dosage: FREQUENCY: IN NECESSARY CASE
     Route: 048
     Dates: start: 20121210, end: 20121210
  4. STILNOX [Suspect]
     Indication: SLEEP DISORDER
     Dosage: FREQUENCY: IN NECESSARY CASE
     Route: 048
     Dates: start: 20121216, end: 20121216
  5. STILNOX [Suspect]
     Indication: SLEEP DISORDER
     Dosage: FREQUENCY: IN NECESSARY CASE
     Route: 048
     Dates: start: 20121218, end: 20121218
  6. PINAVERIUM BROMIDE [Concomitant]
     Route: 048
     Dates: start: 2008
  7. DIMETICONE [Concomitant]
     Route: 048
     Dates: start: 2008
  8. PRAVASTATIN [Concomitant]
     Indication: DYSLIPIDAEMIA
     Dosage: 2 TABS 72 HOURS
     Route: 048
     Dates: start: 2009
  9. BEZAFIBRATE [Concomitant]
     Indication: DYSLIPIDAEMIA
     Route: 048
     Dates: start: 2009
  10. GABAPENTIN [Concomitant]
     Indication: PAIN
     Route: 048
     Dates: start: 2009
  11. HYDROCHLOROTHIAZIDE [Concomitant]
     Indication: PROPHYLAXIS
     Route: 048
     Dates: start: 2010
  12. RANITIDINE [Concomitant]
     Indication: PROPHYLAXIS AGAINST GASTROINTESTINAL ULCER
     Route: 048
     Dates: start: 2010

REACTIONS (4)
  - Hypothyroidism [Unknown]
  - Dizziness [Recovered/Resolved]
  - Medication error [Unknown]
  - Inappropriate schedule of drug administration [Unknown]
